FAERS Safety Report 8229866-4 (Version None)
Quarter: 2012Q1

REPORT INFORMATION
  Report Type: 
  Country: None (occurrence: None)
  Receive Date: 20120323
  Receipt Date: 20120314
  Transmission Date: 20120608
  Serious: Yes (Hospitalization)
  Sender: FDA-Public Use
  Company Number: DE-BIOGENIDEC-2011BI021064

PATIENT
  Age: 45 Year
  Sex: Female
  Weight: 70 kg

DRUGS (1)
  1. TYSABRI [Suspect]
     Indication: MULTIPLE SCLEROSIS
     Route: 042
     Dates: start: 20080516, end: 20110515

REACTIONS (10)
  - HYPERTENSION [None]
  - HYPERSENSITIVITY [None]
  - SUICIDAL IDEATION [None]
  - PROGRESSIVE MULTIFOCAL LEUKOENCEPHALOPATHY [None]
  - STRESS [None]
  - DELUSION [None]
  - IMMUNE RECONSTITUTION SYNDROME [None]
  - PAIN IN EXTREMITY [None]
  - BACK PAIN [None]
  - HALLUCINATION [None]
